FAERS Safety Report 14134284 (Version 1)
Quarter: 2017Q4

REPORT INFORMATION
  Report Type: Spontaneous
  Country: US (occurrence: US)
  Receive Date: 20171027
  Receipt Date: 20171027
  Transmission Date: 20180321
  Serious: Yes (Hospitalization)
  Sender: FDA-Public Use
  Company Number: US-BION-006710

PATIENT
  Age: 16 Year
  Sex: Female

DRUGS (3)
  1. OLANZAPINE. [Concomitant]
     Active Substance: OLANZAPINE
  2. VALPROIC ACID. [Suspect]
     Active Substance: VALPROIC ACID
     Dosage: 20 VPA (250 MG) PILLS
  3. NEFAZODONE/NEFAZODONE HYDROCHLORIDE [Concomitant]

REACTIONS (2)
  - Electrocardiogram change [Recovered/Resolved]
  - Intentional overdose [Unknown]
